FAERS Safety Report 22186298 (Version 2)
Quarter: 2023Q2

REPORT INFORMATION
  Report Type: Spontaneous
  Country: IT (occurrence: IT)
  Receive Date: 20230407
  Receipt Date: 20230411
  Transmission Date: 20230722
  Serious: Yes (Hospitalization)
  Sender: FDA-Public Use
  Company Number: IT-MYLANLABS-2023M1037403

PATIENT
  Age: 5 Year
  Sex: Male

DRUGS (3)
  1. PHENYTOIN [Interacting]
     Active Substance: PHENYTOIN
     Indication: Nervous system disorder prophylaxis
     Dosage: 5 MILLIGRAM/KILOGRAM, BID (FOR 5 DAYS)
     Route: 042
  2. OMEPRAZOLE [Interacting]
     Active Substance: OMEPRAZOLE
     Indication: Gastric disorder
     Dosage: UNK
     Route: 065
  3. OMEPRAZOLE [Interacting]
     Active Substance: OMEPRAZOLE
     Indication: Prophylaxis

REACTIONS (3)
  - Labelled drug-drug interaction medication error [Recovering/Resolving]
  - Loss of consciousness [Recovering/Resolving]
  - Drug level increased [Recovering/Resolving]
